FAERS Safety Report 14208359 (Version 3)
Quarter: 2018Q2

REPORT INFORMATION
  Report Type: Spontaneous
  Country: US (occurrence: US)
  Receive Date: 20171121
  Receipt Date: 20180422
  Transmission Date: 20180711
  Serious: Yes (Hospitalization, Other)
  Sender: FDA-Public Use
  Company Number: US-APOTEX-2017AP021814

PATIENT
  Age: 32 Year
  Sex: Male

DRUGS (1)
  1. LAMOTRIGINE. [Suspect]
     Active Substance: LAMOTRIGINE
     Indication: PRODUCT USED FOR UNKNOWN INDICATION
     Dosage: 9.6 G, UNK
     Route: 065

REACTIONS (7)
  - Blood creatine phosphokinase increased [Unknown]
  - Mental status changes [Unknown]
  - Toxicity to various agents [Unknown]
  - Overdose [Unknown]
  - Haemodynamic instability [Unknown]
  - Encephalopathy [Recovered/Resolved]
  - Muscle rigidity [Recovered/Resolved]
